FAERS Safety Report 18845565 (Version 1)
Quarter: 2021Q1

REPORT INFORMATION
  Report Type: Spontaneous
  Country: US (occurrence: US)
  Receive Date: 20210204
  Receipt Date: 20210204
  Transmission Date: 20210419
  Serious: No
  Sender: FDA-Public Use
  Company Number: None

PATIENT
  Age: 57 Year
  Sex: Female
  Weight: 81.9 kg

DRUGS (1)
  1. CLENPIQ [Suspect]
     Active Substance: ANHYDROUS CITRIC ACID\MAGNESIUM OXIDE\SODIUM PICOSULFATE
     Indication: COLONOSCOPY
     Dosage: ?          QUANTITY:160 LIQUID;OTHER FREQUENCY:1IN PM, 1 IN AM;?
     Route: 048
     Dates: start: 20210202, end: 20210203

REACTIONS (3)
  - Erythema [None]
  - Urticaria [None]
  - Headache [None]

NARRATIVE: CASE EVENT DATE: 20210203
